FAERS Safety Report 24659796 (Version 1)
Quarter: 2024Q4

REPORT INFORMATION
  Report Type: Spontaneous
  Country: US (occurrence: US)
  Receive Date: 20241125
  Receipt Date: 20241125
  Transmission Date: 20250115
  Serious: No
  Sender: PFIZER
  Company Number: US-PFIZER INC-PV202400153058

PATIENT
  Age: 46 Year
  Sex: Female

DRUGS (2)
  1. NURTEC ODT [Suspect]
     Active Substance: RIMEGEPANT SULFATE
     Dosage: 1 TABLET ON THE TONGUE AND ALLOW TO DISSOLVE AS NEEDED
     Route: 048
  2. NURTEC ODT [Suspect]
     Active Substance: RIMEGEPANT SULFATE
     Dosage: 1 TABLET ON THE TONGUE AND ALLOW TO DISSOLVE  ORALLY EVERY OTHER DAY 30 DAYS
     Route: 048

REACTIONS (1)
  - Drug ineffective [Unknown]
